FAERS Safety Report 6298473-5 (Version None)
Quarter: 2009Q3

REPORT INFORMATION
  Report Type: 
  Country: None (occurrence: None)
  Receive Date: 20090724
  Receipt Date: 20090414
  Transmission Date: 20100115
  Serious: Yes (Hospitalization)
  Sender: FDA-Public Use
  Company Number: 2009BI002108

PATIENT
  Age: 61 Year
  Sex: Male

DRUGS (10)
  1. TYSABRI [Suspect]
     Indication: MULTIPLE SCLEROSIS
     Dosage: 300 MG;QM;IV
     Route: 042
     Dates: start: 20070928, end: 20081204
  2. FENTANYL [Concomitant]
  3. NEURONTIN [Concomitant]
  4. TORADOL [Concomitant]
  5. DILAUDID [Concomitant]
  6. SOMA [Concomitant]
  7. DETROL [Concomitant]
  8. VERAPAMIL [Concomitant]
  9. TRAMADOL [Concomitant]
  10. AVONEX [Concomitant]

REACTIONS (4)
  - COORDINATION ABNORMAL [None]
  - DRUG INEFFECTIVE [None]
  - GAIT DISTURBANCE [None]
  - MULTIPLE SCLEROSIS RELAPSE [None]
